FAERS Safety Report 5626130-4 (Version None)
Quarter: 2008Q1

REPORT INFORMATION
  Report Type: 
  Country: None (occurrence: None)
  Receive Date: 20080211
  Receipt Date: 20080131
  Transmission Date: 20080703
  Serious: Yes (Congenital Anomaly, Other)
  Sender: FDA-Public Use
  Company Number: DAV-AE-MTX-08-002

PATIENT
  Age: 33 Year
  Sex: Female

DRUGS (1)
  1. METHOTREXATE [Suspect]
     Indication: ECTOPIC PREGNANCY
     Dosage: 75MG X 1 IM 5 WEEKS GESTATION
     Route: 030

REACTIONS (16)
  - ATRIAL SEPTAL DEFECT [None]
  - CAESAREAN SECTION [None]
  - CONGENITAL ANOMALY [None]
  - DRUG EXPOSURE DURING PREGNANCY [None]
  - FACIAL PALSY [None]
  - FOETAL GROWTH RETARDATION [None]
  - GALLOP RHYTHM PRESENT [None]
  - HEMIVERTEBRA [None]
  - HYPERTELORISM OF ORBIT [None]
  - NIPPLE DISORDER [None]
  - OTOACOUSTIC EMISSIONS TEST ABNORMAL [None]
  - PULMONARY ARTERIAL PRESSURE INCREASED [None]
  - RETINAL ANOMALY CONGENITAL [None]
  - SCOLIOSIS [None]
  - SPINAL DEFORMITY [None]
  - VENTRICULAR SEPTAL DEFECT [None]
